FAERS Safety Report 22592442 (Version 1)
Quarter: 2023Q2

REPORT INFORMATION
  Report Type: Spontaneous
  Country: FR (occurrence: FR)
  Receive Date: 20230613
  Receipt Date: 20230613
  Transmission Date: 20230721
  Serious: Yes (Hospitalization)
  Sender: FDA-Public Use
  Company Number: None

PATIENT
  Age: 72 Year
  Sex: Female
  Weight: 57 kg

DRUGS (3)
  1. XARELTO [Suspect]
     Active Substance: RIVAROXABAN
     Indication: Ischaemic stroke
     Route: 048
     Dates: start: 202303, end: 20230507
  2. FENOFIBRATE [Suspect]
     Active Substance: FENOFIBRATE
     Indication: Ischaemic stroke
     Dosage: 1 DF, QD
     Route: 048
     Dates: start: 202303, end: 20230507
  3. ATORVASTATIN [Suspect]
     Active Substance: ATORVASTATIN
     Indication: Ischaemic stroke
     Dosage: 1 DF, QD
     Route: 048
     Dates: start: 202303, end: 20230507

REACTIONS (6)
  - Hepatitis cholestatic [Not Recovered/Not Resolved]
  - Jaundice [Recovering/Resolving]
  - Rhabdomyolysis [Recovering/Resolving]
  - Urinary tract infection [Unknown]
  - Hepatic cytolysis [Recovering/Resolving]
  - Acute kidney injury [Not Recovered/Not Resolved]

NARRATIVE: CASE EVENT DATE: 20230507
